APPROVED DRUG PRODUCT: AGAMREE
Active Ingredient: VAMOROLONE
Strength: 40MG/ML
Dosage Form/Route: SUSPENSION;ORAL
Application: N215239 | Product #001
Applicant: CATALYST PHARMACEUTICALS INC
Approved: Oct 26, 2023 | RLD: Yes | RS: Yes | Type: RX

PATENTS:
Patent 12201639 | Expires: Mar 17, 2040
Patent 11690853 | Expires: Mar 7, 2033
Patent 11471471 | Expires: Mar 17, 2040
Patent 10857161 | Expires: May 28, 2029
Patent 8334279 | Expires: May 28, 2029
Patent 11833159 | Expires: May 28, 2029
Patent 11382922 | Expires: Jul 16, 2040

EXCLUSIVITY:
Code: NCE | Date: Oct 26, 2028
Code: ODE-450 | Date: Oct 26, 2030